FAERS Safety Report 22867355 (Version 2)
Quarter: 2023Q4

REPORT INFORMATION
  Report Type: Spontaneous
  Country: US (occurrence: US)
  Receive Date: 20230825
  Receipt Date: 20231108
  Transmission Date: 20240109
  Serious: Yes (Other)
  Sender: FDA-Public Use
  Company Number: US-PFIZER INC-PV202300144467

PATIENT
  Age: 74 Year
  Sex: Female
  Weight: 62.585 kg

DRUGS (1)
  1. XELJANZ XR [Suspect]
     Active Substance: TOFACITINIB CITRATE
     Indication: Psoriatic arthropathy
     Dosage: 11 MG, 1X/DAY

REACTIONS (3)
  - Mental impairment [Unknown]
  - Illness [Unknown]
  - Psoriasis [Unknown]

NARRATIVE: CASE EVENT DATE: 20230822
